FAERS Safety Report 16805704 (Version 1)
Quarter: 2019Q3

REPORT INFORMATION
  Report Type: Spontaneous
  Country: CA (occurrence: CA)
  Receive Date: 20190913
  Receipt Date: 20190913
  Transmission Date: 20191005
  Serious: Yes (Hospitalization)
  Sender: FDA-Public Use
  Company Number: CA-ROCHE-2409211

PATIENT
  Age: 60 Year
  Sex: Female

DRUGS (8)
  1. XOLAIR [Suspect]
     Active Substance: OMALIZUMAB
     Indication: ASTHMA
     Dosage: 225 MG, BIW
     Route: 058
  2. ASA [Suspect]
     Active Substance: ASPIRIN
     Indication: PRODUCT USED FOR UNKNOWN INDICATION
     Dosage: 80 MG, UNK
     Route: 065
  3. DESOXIMETASONE. [Concomitant]
     Active Substance: DESOXIMETASONE
     Indication: PRODUCT USED FOR UNKNOWN INDICATION
     Dosage: UNK
     Route: 065
  4. QVAR [Concomitant]
     Active Substance: BECLOMETHASONE DIPROPIONATE
     Indication: PRODUCT USED FOR UNKNOWN INDICATION
     Dosage: UNK
     Route: 065
  5. SINGULAIR [Concomitant]
     Active Substance: MONTELUKAST SODIUM
     Indication: PRODUCT USED FOR UNKNOWN INDICATION
     Dosage: UNK
     Route: 065
  6. VENTOLIN [Concomitant]
     Active Substance: ALBUTEROL SULFATE
     Indication: PRODUCT USED FOR UNKNOWN INDICATION
     Dosage: UNK
     Route: 065
  7. ADVAIR HFA [Concomitant]
     Active Substance: FLUTICASONE PROPIONATE\SALMETEROL XINAFOATE
     Indication: PRODUCT USED FOR UNKNOWN INDICATION
     Dosage: UNK
     Route: 065
  8. PREDNISONE. [Concomitant]
     Active Substance: PREDNISONE
     Indication: PRODUCT USED FOR UNKNOWN INDICATION
     Dosage: UNK
     Route: 065

REACTIONS (36)
  - Abdominal pain [Unknown]
  - Asthma [Unknown]
  - Blood pressure diastolic increased [Unknown]
  - Bronchitis [Unknown]
  - Gastrointestinal carcinoma [Unknown]
  - Injection site erythema [Unknown]
  - Nasopharyngitis [Unknown]
  - Wheezing [Unknown]
  - Acne [Unknown]
  - Cholelithiasis [Unknown]
  - Drug dependence [Unknown]
  - Gastric mucosal lesion [Unknown]
  - Product contamination physical [Unknown]
  - Vomiting [Unknown]
  - Dyspnoea [Unknown]
  - Nephrolithiasis [Unknown]
  - Pneumonia [Unknown]
  - Drug hypersensitivity [Unknown]
  - Insomnia [Unknown]
  - Malaise [Unknown]
  - Rash [Unknown]
  - Seasonal allergy [Unknown]
  - Urticaria [Unknown]
  - Candida infection [Unknown]
  - Hypersensitivity [Unknown]
  - Sinusitis [Unknown]
  - Fluid retention [Unknown]
  - Productive cough [Unknown]
  - Rales [Unknown]
  - Sputum retention [Unknown]
  - Swelling [Unknown]
  - Arthropathy [Unknown]
  - Bile duct stone [Unknown]
  - Erythema [Unknown]
  - Fear [Unknown]
  - Sputum discoloured [Unknown]
